FAERS Safety Report 6504211-0 (Version None)
Quarter: 2009Q4

REPORT INFORMATION
  Report Type: 
  Country: None (occurrence: None)
  Receive Date: 20091217
  Receipt Date: 20091210
  Transmission Date: 20100525
  Serious: Yes (Life-Threatening, Other)
  Sender: FDA-Public Use
  Company Number: NL-WYE-G05027209

PATIENT
  Age: 50 Year
  Sex: Male
  Weight: 80 kg

DRUGS (3)
  1. EFFEXOR XR [Suspect]
     Indication: DEPRESSION
     Dosage: 37.5 MG TO 150 MG PER DAY
     Dates: start: 20071101, end: 20080101
  2. EFFEXOR XR [Suspect]
     Indication: ANXIETY
     Dosage: MAX 150 MG PER DAY AND THEN TAPERED UNTILL IT WAS WITHDRAWN
     Dates: start: 20080101, end: 20091101
  3. LITHIUM CARBONATE [Suspect]
     Dosage: UNK DOSE
     Dates: start: 20090601, end: 20090101

REACTIONS (16)
  - AMNESIA [None]
  - BRADYPHRENIA [None]
  - CONDITION AGGRAVATED [None]
  - DEPRESSION [None]
  - DEPRESSION SUICIDAL [None]
  - DRUG WITHDRAWAL SYNDROME [None]
  - ERECTILE DYSFUNCTION [None]
  - FLAT AFFECT [None]
  - GENERALISED OEDEMA [None]
  - HAND FRACTURE [None]
  - HOMICIDAL IDEATION [None]
  - IMPULSE-CONTROL DISORDER [None]
  - INDIFFERENCE [None]
  - LOSS OF LIBIDO [None]
  - NASAL CONGESTION [None]
  - PSYCHOTIC DISORDER [None]
